FAERS Safety Report 7154679 (Version 8)
Quarter: 2013Q3

REPORT INFORMATION
  Report Type: Spontaneous
  Country: US (occurrence: US)
  Receive Date: 20091021
  Receipt Date: 20130801
  Transmission Date: 20140515
  Serious: Yes (Death, Hospitalization, Other)
  Sender: FDA-Public Use
  Company Number: PHEH2009US13607

PATIENT
  Age: 79 Year
  Sex: Male

DRUGS (41)
  1. ZOMETA [Suspect]
     Indication: METASTASES TO CENTRAL NERVOUS SYSTEM
     Dosage: 3.5 MG, QMO
     Dates: start: 2004, end: 200805
  2. TYLENOL [Concomitant]
     Dosage: 650 MG, Q4H PRN
     Route: 048
  3. CLEOCIN [Concomitant]
     Dosage: 300 MG, TID
  4. KETOCONAZOLE [Concomitant]
     Dosage: 200 MG, TID2SDO
  5. CORTEF [Concomitant]
     Dosage: 5 MG, UNK
  6. EFFEXOR [Concomitant]
     Dosage: 150 MG, QD
  7. SEROQUEL [Concomitant]
     Dosage: 50 MG, TID
  8. REMERON [Concomitant]
     Dosage: 30 MG, QD
  9. SIMVASTATIN [Concomitant]
     Dosage: 80 MG, QD
  10. ADVAIR [Concomitant]
  11. DARVOCET-N [Concomitant]
  12. XALATAN [Concomitant]
  13. TRUSOPT [Concomitant]
  14. ALPHAGAN [Concomitant]
  15. MIRTAZAPINE [Concomitant]
     Dosage: 30 MG, UNK
  16. SPIRIVA [Concomitant]
  17. ALBUTEROL [Concomitant]
  18. VITAMIN D [Concomitant]
     Dosage: 1000 IU, UNK
  19. TRIAMCINOLONE [Concomitant]
  20. PNEUMOVAX [Concomitant]
     Dosage: 0.5 ML, UNK
     Dates: start: 19991227
  21. MIDAZOLAM [Concomitant]
     Indication: ANXIETY
  22. LATANOPROST [Concomitant]
  23. TIOTROPIUM [Concomitant]
  24. MECLIZINE [Concomitant]
     Dosage: 50 MG, QID
  25. XANAX [Concomitant]
     Dosage: 0.25 MG, TID
  26. VASOTEC [Concomitant]
     Dosage: 10 MG, QD
  27. PAXIL [Concomitant]
     Dosage: 25 MG, BID
  28. ALPRAZOLAM [Concomitant]
     Dosage: 0.5 MG, TID
  29. ENALAPRIL [Concomitant]
     Dosage: 10 MG, UNK
  30. PAROXETINE [Concomitant]
     Dosage: 15 MG, BID
  31. FLUTICASONE W/SALMETEROL [Concomitant]
  32. CALCIUM CARBONATE [Concomitant]
     Dosage: 500 MG, UNK
  33. MOMETASONE [Concomitant]
  34. TIMOLOL [Concomitant]
  35. TETANUS VACCINE [Concomitant]
     Dates: start: 19990406
  36. INFLUENZA VACCINE [Concomitant]
     Dates: start: 2010
  37. LOTENSIN [Concomitant]
     Dosage: 10 MG, QD
  38. NORPACE [Concomitant]
     Dosage: 200 MG, TID
  39. IRON [Concomitant]
     Dosage: 325 MG, QD
     Route: 048
  40. COLACE [Concomitant]
     Dosage: 100 MG, BID
     Route: 048
  41. PILOSTAT [Concomitant]

REACTIONS (43)
  - Death [Fatal]
  - Chronic obstructive pulmonary disease [Unknown]
  - Dyspnoea [Unknown]
  - Respiratory disorder [Unknown]
  - Osteonecrosis of jaw [Unknown]
  - Injury [Unknown]
  - Disability [Unknown]
  - Pain [Unknown]
  - Anxiety [Unknown]
  - Anhedonia [Unknown]
  - Prostate cancer [Unknown]
  - Metastases to bone [Unknown]
  - Hyperlipidaemia [Unknown]
  - Haematoma [Unknown]
  - Glaucoma [Unknown]
  - Anaemia [Unknown]
  - Coronary artery disease [Unknown]
  - Cardiac failure congestive [Unknown]
  - Pulmonary hypertension [Unknown]
  - Glucose tolerance impaired [Unknown]
  - Adrenal insufficiency [Unknown]
  - Depression [Unknown]
  - Emphysema [Unknown]
  - Fall [Unknown]
  - Hearing impaired [Unknown]
  - Bundle branch block right [Unknown]
  - Aortic dilatation [Unknown]
  - Aortic valve incompetence [Unknown]
  - Aortic valve sclerosis [Unknown]
  - Back pain [Unknown]
  - Osteoarthritis [Unknown]
  - Nephrolithiasis [Unknown]
  - Renal cyst [Unknown]
  - Exposed bone in jaw [Unknown]
  - Hyperplasia [Unknown]
  - Inflammation [Unknown]
  - Ulcer [Unknown]
  - Renal failure chronic [Unknown]
  - Cerebrovascular accident [Unknown]
  - Contusion [Unknown]
  - Ventricular hypertrophy [Unknown]
  - Neuropathy peripheral [Unknown]
  - Diarrhoea [Unknown]
